FAERS Safety Report 6467726-X (Version None)
Quarter: 2009Q4

REPORT INFORMATION
  Report Type: 
  Country: None (occurrence: None)
  Receive Date: 20091127
  Receipt Date: 20091116
  Transmission Date: 20100525
  Serious: Yes (Other)
  Sender: FDA-Public Use
  Company Number: 230057J09AUS

PATIENT
  Sex: Female

DRUGS (16)
  1. REBIF [Suspect]
     Indication: MULTIPLE SCLEROSIS
     Dosage: 44 MCG, 3 IN 1 WEEKS, SUBCUTANEOUS
     Route: 058
     Dates: start: 20090602
  2. WARFARIN (WARFARIN /00014801/) [Concomitant]
  3. MOVICAL [MOVICOL] (NULYTELY) [Concomitant]
  4. COLOXYL WITH SENNA (COLOXYL WITH SENNA) [Concomitant]
  5. UREA CRYSTALS WITH H20 (UREA) [Concomitant]
  6. TEGRETOL [Concomitant]
  7. LASIX (FUROSEMIDE /00032601/) [Concomitant]
  8. DITROPAN [Concomitant]
  9. XANAX [Concomitant]
  10. MICARDIS [Concomitant]
  11. RABEPRAZOLE SODIUM [Concomitant]
  12. ZANIDEP [ZANIDIP] (LERCANIDIPINE HYDROCHLORIDE) [Concomitant]
  13. PROTHIADEN (DOSULEPIN /00160401/) [Concomitant]
  14. CLOFEN (BACLOFEN) [Concomitant]
  15. METFORMIN HCL [Concomitant]
  16. INSULIN (INSULIN /00030501/) [Concomitant]

REACTIONS (1)
  - NO ADVERSE EVENT [None]
